FAERS Safety Report 7988057-2 (Version None)
Quarter: 2011Q4

REPORT INFORMATION
  Report Type: 
  Country: None (occurrence: None)
  Receive Date: 20111216
  Receipt Date: 20101203
  Transmission Date: 20120403
  Serious: No
  Sender: FDA-Public Use
  Company Number: US-BRISTOL-MYERS SQUIBB COMPANY-15425465

PATIENT
  Age: 19 Month
  Sex: Female

DRUGS (1)
  1. ABILIFY [Suspect]
     Dosage: 1DF=1-2MG.ORAL SUSPENSION
     Route: 048

REACTIONS (1)
  - DYSTONIA [None]
